FAERS Safety Report 5526235-2 (Version None)
Quarter: 2007Q4

REPORT INFORMATION
  Report Type: 
  Country: None (occurrence: None)
  Receive Date: 20071127
  Receipt Date: 20071116
  Transmission Date: 20080405
  Serious: Yes (Life-Threatening)
  Sender: FDA-Public Use
  Company Number: PHFR2007GB03359

PATIENT
  Age: 19 Year
  Sex: Female

DRUGS (14)
  1. CYCLOSPORINE [Suspect]
     Route: 065
  2. CHLORPHENAMINE [Suspect]
     Dosage: 10 MG, QID
     Route: 042
  3. ETOPOSIDE [Suspect]
     Dosage: UNK, UNK
     Route: 042
     Dates: start: 20070915, end: 20070915
  4. KETALAR [Suspect]
     Indication: PAIN
     Dosage: 6MLS / 1 HOUR
     Route: 042
     Dates: start: 20070921, end: 20070928
  5. MORPHINE [Suspect]
     Route: 042
  6. NORETHISTERONE [Suspect]
     Dosage: 5 MG, TID
     Route: 048
  7. OMEPRAZOLE [Suspect]
     Route: 065
  8. ONDANSETRON [Suspect]
     Dosage: 8 MG, TID
     Route: 042
  9. PARACETAMOL [Suspect]
     Route: 042
  10. TAZOCIN [Suspect]
     Dosage: 4.5 MG, TID
     Route: 042
  11. VORICONAZOLE [Suspect]
     Dosage: 200 MG, BID
     Route: 048
  12. ACYCLOVIR [Suspect]
     Route: 065
  13. ALLOPURINOL [Suspect]
     Dosage: 300 MG, QD
     Route: 048
  14. CASPOFUNGIN [Suspect]
     Dosage: 70 MG, QD
     Route: 042

REACTIONS (4)
  - ALANINE AMINOTRANSFERASE INCREASED [None]
  - BLOOD ALKALINE PHOSPHATASE INCREASED [None]
  - BLOOD BILIRUBIN INCREASED [None]
  - DILATATION INTRAHEPATIC DUCT ACQUIRED [None]
